FAERS Safety Report 6681043-4 (Version None)
Quarter: 2010Q2

REPORT INFORMATION
  Report Type: 
  Country: None (occurrence: None)
  Receive Date: 20100414
  Receipt Date: 20100413
  Transmission Date: 20101027
  Serious: Yes (Other)
  Sender: FDA-Public Use
  Company Number: NL-JNJFOC-20090806985

PATIENT
  Age: 73 Year
  Sex: Male

DRUGS (12)
  1. DAKTARIN [Suspect]
     Route: 061
  2. DAKTARIN [Suspect]
     Indication: DRUG USE FOR UNKNOWN INDICATION
     Route: 061
  3. DOXYCYCLINE [Suspect]
     Indication: RESPIRATORY TRACT INFECTION
     Route: 065
  4. PHENPROCOUMON [Interacting]
     Indication: DRUG USE FOR UNKNOWN INDICATION
     Route: 065
  5. VITAMIN B COMPLEX CAP [Concomitant]
     Route: 065
  6. INSULIN [Concomitant]
     Route: 065
  7. FLAMMAZINE [Concomitant]
     Route: 065
  8. CARBIDOPA AND LEVODOPA [Concomitant]
     Route: 065
  9. LACTULOSE [Concomitant]
     Route: 065
  10. PARACETAMOL [Concomitant]
     Route: 065
  11. OMEPRAZOLE [Concomitant]
     Route: 065
  12. MOTILIUM [Concomitant]
     Route: 065

REACTIONS (2)
  - DRUG INTERACTION [None]
  - INTERNATIONAL NORMALISED RATIO INCREASED [None]
